FAERS Safety Report 19526460 (Version 1)
Quarter: 2021Q3

REPORT INFORMATION
  Report Type: Spontaneous
  Country: US (occurrence: US)
  Receive Date: 20210713
  Receipt Date: 20210713
  Transmission Date: 20211014
  Serious: Yes (Other)
  Sender: FDA-Public Use
  Company Number: None

PATIENT
  Age: 55 Year
  Sex: Female

DRUGS (1)
  1. LATISSE [Suspect]
     Active Substance: BIMATOPROST
     Indication: HYPOTRICHOSIS
     Route: 047
     Dates: start: 20180809

REACTIONS (1)
  - Cataract subcapsular [None]

NARRATIVE: CASE EVENT DATE: 20200603
